FAERS Safety Report 5566140-9 (Version None)
Quarter: 2007Q4

REPORT INFORMATION
  Report Type: 
  Country: None (occurrence: None)
  Receive Date: 20071219
  Receipt Date: 20070105
  Transmission Date: 20080405
  Serious: No
  Sender: FDA-Public Use
  Company Number: US-KINGPHARMUSA00001-K200700008

PATIENT

DRUGS (7)
  1. APLISOL [Suspect]
     Indication: TUBERCULIN TEST
     Dosage: .1 ML, SINGLE
     Route: 023
     Dates: start: 20070102, end: 20070102
  2. DEPAKOTE [Concomitant]
     Indication: TOURETTE'S DISORDER
     Dosage: 1500 MG, QD
     Route: 048
  3. RISPERDAL [Concomitant]
     Indication: TOURETTE'S DISORDER
     Dosage: 5 MG, QD
     Route: 048
  4. BENADRYL [Concomitant]
     Indication: TOURETTE'S DISORDER
     Dosage: 25 UNK, QD
     Route: 048
  5. ABILIFY [Concomitant]
     Indication: TOURETTE'S DISORDER
     Dosage: 10 MG, QD
     Route: 048
  6. LEXAPRO [Concomitant]
     Indication: DEPRESSION
     Dosage: 30 MG, QD
     Route: 048
  7. ANAFRANIL [Concomitant]
     Indication: DEPRESSION
     Dosage: UNK, UNK
     Route: 048

REACTIONS (1)
  - INJECTION SITE ERYTHEMA [None]
